FAERS Safety Report 17451640 (Version 1)
Quarter: 2020Q1

REPORT INFORMATION
  Report Type: Report from Study
  Country: US (occurrence: US)
  Receive Date: 20200224
  Receipt Date: 20200224
  Transmission Date: 20200409
  Serious: Yes (Other)
  Sender: FDA-Public Use
  Company Number: US-GLAXOSMITHKLINE-2019-TSO02598-US

PATIENT
  Sex: Female

DRUGS (6)
  1. NIRAPARIB [Suspect]
     Active Substance: NIRAPARIB
     Dosage: 200 MG, QD
     Dates: start: 20200131, end: 20200214
  2. AVASTIN [Concomitant]
     Active Substance: BEVACIZUMAB
     Indication: PRODUCT USED FOR UNKNOWN INDICATION
     Dosage: UNK
  3. NIRAPARIB [Suspect]
     Active Substance: NIRAPARIB
     Dosage: 200 MG, 9PM W/O FOOD
     Route: 048
     Dates: start: 20190801, end: 20190917
  4. NIRAPARIB [Suspect]
     Active Substance: NIRAPARIB
     Dosage: 300 MG, QD
     Route: 048
     Dates: start: 20191111, end: 20191214
  5. NIRAPARIB [Suspect]
     Active Substance: NIRAPARIB
     Indication: GENITAL NEOPLASM MALIGNANT FEMALE
     Dosage: 300 MG, 9PM W/O FOOD
     Route: 065
     Dates: start: 20190627, end: 20190731
  6. NIRAPARIB [Suspect]
     Active Substance: NIRAPARIB
     Dosage: 200 MG, QD
     Route: 048
     Dates: start: 20191030, end: 20191110

REACTIONS (11)
  - Thrombocytopenia [Not Recovered/Not Resolved]
  - Anaemia [Unknown]
  - Muscle spasms [Unknown]
  - Muscle strain [Unknown]
  - Skin burning sensation [Unknown]
  - Insomnia [Recovered/Resolved]
  - Dizziness [Recovered/Resolved]
  - Malignant neoplasm progression [Unknown]
  - Abnormal dreams [Recovered/Resolved]
  - Blood pressure increased [Recovered/Resolved]
  - Pruritus [Unknown]
